FAERS Safety Report 10451755 (Version 2)
Quarter: 2016Q1

REPORT INFORMATION
  Report Type: Report from Study
  Country: US (occurrence: US)
  Receive Date: 20140915
  Receipt Date: 20160311
  Transmission Date: 20160525
  Serious: Yes (Other)
  Sender: FDA-Public Use
  Company Number: US-ROCHE-1460861

PATIENT
  Age: 5 Year
  Sex: Male
  Weight: 17.2 kg

DRUGS (10)
  1. NUTROPIN AQ [Suspect]
     Active Substance: SOMATROPIN
     Dosage: AT NIGHT
     Route: 058
     Dates: start: 201009
  2. KEPPRA [Concomitant]
     Active Substance: LEVETIRACETAM
     Route: 065
  3. NUTROPIN AQ [Suspect]
     Active Substance: SOMATROPIN
     Indication: HYPOPITUITARISM
     Route: 058
     Dates: start: 201009, end: 20131125
  4. NUTROPIN AQ [Suspect]
     Active Substance: SOMATROPIN
     Route: 058
     Dates: start: 20131125
  5. CORN STARCH [Concomitant]
     Active Substance: STARCH, CORN
     Dosage: 3 TABLESPOONS AT 2330 AND 4 TABLESPOONS AT 0330
     Route: 048
  6. COENZYME Q [Concomitant]
  7. CORTEF [Concomitant]
     Active Substance: HYDROCORTISONE
     Route: 048
  8. NUTROPIN AQ [Suspect]
     Active Substance: SOMATROPIN
     Route: 058
  9. CARNITOR [Concomitant]
     Active Substance: LEVOCARNITINE
     Route: 065
  10. DIAZEPAM. [Suspect]
     Active Substance: DIAZEPAM
     Indication: EAR INFECTION
     Route: 065
     Dates: start: 201202

REACTIONS (7)
  - Muscle disorder [Unknown]
  - Hypoglycaemia [Unknown]
  - Knee deformity [Unknown]
  - Weight increased [Unknown]
  - Lymphadenopathy [Unknown]
  - Rhinorrhoea [Unknown]
  - Hypotonia [Unknown]

NARRATIVE: CASE EVENT DATE: 2012
